FAERS Safety Report 22206935 (Version 1)
Quarter: 2023Q2

REPORT INFORMATION
  Report Type: Report from Study
  Country: US (occurrence: US)
  Receive Date: 20230413
  Receipt Date: 20230413
  Transmission Date: 20230722
  Serious: Yes (Other)
  Sender: FDA-Public Use
  Company Number: US-HORIZON THERAPEUTICS-HZN-2022-003143

PATIENT

DRUGS (2)
  1. TEPEZZA [Suspect]
     Active Substance: TEPROTUMUMAB-TRBW
     Indication: Endocrine ophthalmopathy
     Dosage: 1ST INFUSION
     Route: 042
     Dates: start: 20220405
  2. TEPEZZA [Suspect]
     Active Substance: TEPROTUMUMAB-TRBW
     Dosage: FINAL INFUSION
     Route: 042
     Dates: start: 202208, end: 202208

REACTIONS (14)
  - Deafness bilateral [Not Recovered/Not Resolved]
  - Pituitary tumour [Recovered/Resolved]
  - Acromegaly [Recovered/Resolved]
  - Hypersomnia [Recovered/Resolved]
  - Formication [Recovering/Resolving]
  - Onychoclasis [Recovered/Resolved]
  - Glycosylated haemoglobin increased [Unknown]
  - Tinnitus [Unknown]
  - Muscle spasms [Not Recovered/Not Resolved]
  - Diarrhoea [Recovered/Resolved]
  - Fatigue [Recovered/Resolved]
  - Diplopia [Not Recovered/Not Resolved]
  - Libido decreased [Recovered/Resolved]
  - Hypotrichosis [Recovered/Resolved]

NARRATIVE: CASE EVENT DATE: 20220101
